FAERS Safety Report 21643919 (Version 1)
Quarter: 2022Q4

REPORT INFORMATION
  Report Type: Spontaneous
  Country: US (occurrence: US)
  Receive Date: 20221125
  Receipt Date: 20221125
  Transmission Date: 20230113
  Serious: Yes (Hospitalization, Other)
  Sender: FDA-Public Use
  Company Number: US-SA-SAC20221125000089

PATIENT
  Age: 68 Year
  Sex: Female

DRUGS (3)
  1. DUPIXENT [Suspect]
     Active Substance: DUPILUMAB
     Indication: Asthma
     Dosage: 300MG, QOW
     Route: 058
  2. TRELEGY ELLIPTA [Concomitant]
     Active Substance: FLUTICASONE FUROATE\UMECLIDINIUM BROMIDE\VILANTEROL TRIFENATATE
     Dosage: 100-62.5
  3. AMLODIPINE BESYLATE [Concomitant]
     Active Substance: AMLODIPINE BESYLATE

REACTIONS (3)
  - Deep vein thrombosis [Recovered/Resolved]
  - Hospitalisation [Unknown]
  - Rash [Recovered/Resolved]

NARRATIVE: CASE EVENT DATE: 20220801
